FAERS Safety Report 8565455-X (Version None)
Quarter: 2012Q3

REPORT INFORMATION
  Report Type: 
  Country: None (occurrence: None)
  Receive Date: 20120803
  Receipt Date: 20120723
  Transmission Date: 20120928
  Serious: Yes (Hospitalization, Other)
  Sender: FDA-Public Use
  Company Number: JP-ROCHE-756131

PATIENT
  Sex: Male

DRUGS (41)
  1. ACTEMRA [Suspect]
     Route: 041
     Dates: start: 20090729, end: 20100729
  2. ACTEMRA [Suspect]
     Route: 041
     Dates: start: 20100331, end: 20100331
  3. ACTEMRA [Suspect]
     Route: 041
     Dates: start: 20101110, end: 20101110
  4. ACTEMRA [Suspect]
     Route: 041
     Dates: start: 20101208, end: 20101208
  5. PREDNISOLONE [Suspect]
     Route: 048
  6. ACTEMRA [Suspect]
     Route: 041
     Dates: start: 20090507, end: 20090507
  7. ACTEMRA [Suspect]
     Route: 041
     Dates: start: 20100526, end: 20100526
  8. ACTEMRA [Suspect]
     Route: 041
     Dates: start: 20100623, end: 20100623
  9. ACTEMRA [Suspect]
     Route: 041
     Dates: start: 20100818, end: 20100818
  10. ACTEMRA [Suspect]
     Route: 041
     Dates: start: 20090826, end: 20100826
  11. ACTEMRA [Suspect]
     Route: 041
     Dates: start: 20100210, end: 20100210
  12. ACTEMRA [Suspect]
     Route: 041
     Dates: start: 20100310, end: 20100310
  13. ETODOLAC [Concomitant]
     Route: 048
  14. HALCION [Concomitant]
     Dosage: AS NEEDED 0.25 MG A DAY
     Route: 048
  15. ACTEMRA [Suspect]
     Route: 041
     Dates: start: 20090408, end: 20090408
  16. ACTEMRA [Suspect]
     Route: 041
     Dates: start: 20100113, end: 20110113
  17. ACTEMRA [Suspect]
     Route: 041
     Dates: start: 20100915, end: 20100915
  18. CYTOTEC [Concomitant]
     Route: 048
  19. ACTEMRA [Suspect]
     Route: 041
     Dates: start: 20090603, end: 20090603
  20. ACTEMRA [Suspect]
     Route: 041
     Dates: start: 20090701, end: 20090701
  21. ACTEMRA [Suspect]
     Route: 041
     Dates: start: 20091021, end: 20101021
  22. ACTEMRA [Suspect]
     Route: 041
     Dates: start: 20101013, end: 20101013
  23. ACTEMRA [Suspect]
     Route: 041
  24. PREDNISOLONE [Suspect]
     Indication: RHEUMATOID ARTHRITIS
     Route: 048
  25. VOLTAREN [Concomitant]
     Dosage: SINGLE USE, DOSAGE DURING A DAY: 25 MG
     Route: 054
  26. FOLIC ACID [Concomitant]
     Route: 048
     Dates: start: 20090730, end: 20100113
  27. ACTEMRA [Suspect]
     Route: 041
     Dates: start: 20091118, end: 20101118
  28. ACTEMRA [Suspect]
     Route: 041
     Dates: start: 20091216, end: 20101216
  29. ACTEMRA [Suspect]
     Route: 041
     Dates: start: 20110105, end: 20110105
  30. ALENDRONATE SODIUM [Concomitant]
     Route: 048
  31. DEPAS [Concomitant]
     Route: 048
  32. ACTEMRA [Suspect]
     Route: 041
     Dates: start: 20090212, end: 20090212
  33. ACTEMRA [Suspect]
     Route: 041
     Dates: start: 20090311, end: 20090311
  34. ACTEMRA [Suspect]
     Route: 041
     Dates: start: 20100428, end: 20100428
  35. PREDNISOLONE [Suspect]
     Route: 048
     Dates: start: 20090311, end: 20090924
  36. METHOTREXATE SODIUM [Suspect]
     Indication: PRODUCT USED FOR UNKNOWN INDICATION
     Route: 048
     Dates: start: 20090730, end: 20100113
  37. RABEPRAZOLE SODIUM [Concomitant]
     Route: 048
  38. SULFAMETHOXAZOLE AND TRIMETHOPRIM [Concomitant]
     Route: 048
     Dates: start: 20090730, end: 20100113
  39. ACTEMRA [Suspect]
     Indication: RHEUMATOID ARTHRITIS
     Route: 041
     Dates: start: 20090114, end: 20090114
  40. ACTEMRA [Suspect]
     Route: 041
     Dates: start: 20090924, end: 20100924
  41. ACTEMRA [Suspect]
     Route: 041
     Dates: start: 20100721, end: 20100721

REACTIONS (7)
  - CORONARY ARTERY STENOSIS [None]
  - ARTHRITIS [None]
  - CHEST PAIN [None]
  - BLOOD CHOLESTEROL INCREASED [None]
  - ANGINA PECTORIS [None]
  - ECZEMA [None]
  - PROSTATE CANCER [None]
